FAERS Safety Report 6840737-8 (Version None)
Quarter: 2010Q3

REPORT INFORMATION
  Report Type: 
  Country: None (occurrence: None)
  Receive Date: 20100714
  Receipt Date: 20100630
  Transmission Date: 20110219
  Serious: Yes (Life-Threatening, Hospitalization, Other)
  Sender: FDA-Public Use
  Company Number: GB-MYLANLABS-2010S1011702

PATIENT
  Age: 23 Year
  Sex: Female

DRUGS (2)
  1. CIPROFLOXACIN [Suspect]
     Indication: PYELONEPHRITIS
     Route: 048
     Dates: start: 20100531, end: 20100601
  2. VALPROATE SODIUM [Concomitant]
     Indication: EPILEPSY

REACTIONS (1)
  - EPILEPSY [None]
